FAERS Safety Report 12545085 (Version 2)
Quarter: 2016Q3

REPORT INFORMATION
  Report Type: Report from Study
  Country: US (occurrence: US)
  Receive Date: 20160711
  Receipt Date: 20160816
  Transmission Date: 20161109
  Serious: Yes (Other)
  Sender: FDA-Public Use
  Company Number: US-JNJFOC-20160706030

PATIENT
  Age: 90 Year
  Sex: Male

DRUGS (6)
  1. SINEMET [Concomitant]
     Active Substance: CARBIDOPA\LEVODOPA
  2. IMBRUVICA [Suspect]
     Active Substance: IBRUTINIB
     Indication: MANTLE CELL LYMPHOMA
     Route: 048
     Dates: start: 20150715, end: 20160601
  3. POTASSIUM [Concomitant]
     Active Substance: POTASSIUM
  4. DOXAZOSIN [Concomitant]
     Active Substance: DOXAZOSIN\DOXAZOSIN MESYLATE
  5. LASIX [Concomitant]
     Active Substance: FUROSEMIDE
  6. LOVASTATIN. [Concomitant]
     Active Substance: LOVASTATIN

REACTIONS (3)
  - Therapy cessation [None]
  - Splenomegaly [None]
  - Recurrent cancer [Unknown]

NARRATIVE: CASE EVENT DATE: 201604
